FAERS Safety Report 18120374 (Version 2)
Quarter: 2020Q3

REPORT INFORMATION
  Report Type: Spontaneous
  Country: US (occurrence: US)
  Receive Date: 20200806
  Receipt Date: 20200813
  Transmission Date: 20201103
  Serious: Yes (Hospitalization, Other)
  Sender: FDA-Public Use
  Company Number: US-IBIGEN-2020.09109

PATIENT
  Age: 8 Month
  Sex: Female
  Weight: 9.27 kg

DRUGS (2)
  1. GENTAMICIN. [Suspect]
     Active Substance: GENTAMICIN
     Indication: SEPSIS
     Dosage: ADMINISTERED THE FIRST DAY OF LIFE AND DISCONTINUED AFTER 48 HOURS
  2. AMPICILLIN [Suspect]
     Active Substance: AMPICILLIN
     Indication: SEPSIS
     Dosage: ADMINISTERED THE FIRST DAY OF LIFE AND DISCONTINUED AFTER 48 HOURS

REACTIONS (11)
  - Leukocytosis [Recovering/Resolving]
  - Escherichia urinary tract infection [Recovered/Resolved]
  - Escherichia infection [Recovered/Resolved]
  - Urine leukocyte esterase positive [Recovering/Resolving]
  - Decreased appetite [Recovering/Resolving]
  - Urine odour abnormal [Recovering/Resolving]
  - Heart rate increased [Recovering/Resolving]
  - Otitis media [Recovered/Resolved]
  - Pyrexia [Recovered/Resolved]
  - Respiratory rate decreased [Recovering/Resolving]
  - Pathogen resistance [Recovered/Resolved]
